FAERS Safety Report 12379393 (Version 2)
Quarter: 2016Q3

REPORT INFORMATION
  Report Type: Spontaneous
  Country: US (occurrence: US)
  Receive Date: 20160517
  Receipt Date: 20160901
  Transmission Date: 20161109
  Serious: No
  Sender: FDA-Public Use
  Company Number: US-RELYPSA-RLY2016000196

PATIENT
  Sex: Female

DRUGS (31)
  1. RENVELA [Concomitant]
     Active Substance: SEVELAMER CARBONATE
  2. POTASSIUM [Concomitant]
     Active Substance: POTASSIUM
  3. LATUDA [Concomitant]
     Active Substance: LURASIDONE HYDROCHLORIDE
  4. HYDRALAZINE HCL [Concomitant]
     Active Substance: HYDRALAZINE HYDROCHLORIDE
  5. DIAZEPAM. [Concomitant]
     Active Substance: DIAZEPAM
  6. DEPLIN [Concomitant]
     Active Substance: LEVOMEFOLATE CALCIUM
  7. CYMBALTA [Concomitant]
     Active Substance: DULOXETINE HYDROCHLORIDE
  8. ALPHA LIPOIC ACID [Concomitant]
     Active Substance: .ALPHA.-LIPOIC ACID
  9. PROBIOTIC                          /06395501/ [Concomitant]
     Active Substance: BIFIDOBACTERIUM ANIMALIS SUBSP. LACTIS
  10. MELOXICAM. [Concomitant]
     Active Substance: MELOXICAM
  11. CORTISONE ACETATE. [Concomitant]
     Active Substance: CORTISONE ACETATE
  12. CHROMIUM [Concomitant]
     Active Substance: CHROMIC CHLORIDE\CHROMIUM
  13. BUPROPION HCL [Concomitant]
     Active Substance: BUPROPION HYDROCHLORIDE
  14. MYRBETRIQ [Concomitant]
     Active Substance: MIRABEGRON
  15. LOSARTAN. [Concomitant]
     Active Substance: LOSARTAN
  16. TIZANIDINE HCL [Concomitant]
     Active Substance: TIZANIDINE HYDROCHLORIDE
  17. VELTASSA [Suspect]
     Active Substance: PATIROMER
     Indication: HYPERKALAEMIA
     Dosage: 8.4 G, QD
  18. MULTIVITAMIN                       /00097801/ [Concomitant]
     Active Substance: VITAMINS
  19. CLONIDINE HCL [Concomitant]
     Active Substance: CLONIDINE HYDROCHLORIDE
  20. LIPITOR [Concomitant]
     Active Substance: ATORVASTATIN CALCIUM
  21. TRILIPIX [Concomitant]
     Active Substance: FENOFIBRIC ACID
  22. VITAMIN D3 [Concomitant]
     Active Substance: CHOLECALCIFEROL
  23. TOPROL XL [Concomitant]
     Active Substance: METOPROLOL SUCCINATE
  24. GABAPENTIN. [Concomitant]
     Active Substance: GABAPENTIN
  25. ACETYL L-CARNITINE                 /00949201/ [Concomitant]
  26. GLYBURIDE. [Concomitant]
     Active Substance: GLYBURIDE
  27. TRAZODONE HYDROCHLORIDE. [Concomitant]
     Active Substance: TRAZODONE HYDROCHLORIDE
  28. OXYBUTYNIN CHLORIDE. [Concomitant]
     Active Substance: OXYBUTYNIN CHLORIDE
  29. LOVAZA [Concomitant]
     Active Substance: OMEGA-3-ACID ETHYL ESTERS
  30. SODIUM BICARBONATE. [Concomitant]
     Active Substance: SODIUM BICARBONATE
  31. LISINOPRIL. [Concomitant]
     Active Substance: LISINOPRIL

REACTIONS (3)
  - Fatigue [Unknown]
  - Adverse event [Unknown]
  - Asthenia [Unknown]
